FAERS Safety Report 9126329 (Version 2)
Quarter: 2013Q2

REPORT INFORMATION
  Report Type: Spontaneous
  Country: US (occurrence: US)
  Receive Date: 20130228
  Receipt Date: 20130517
  Transmission Date: 20140414
  Serious: No
  Sender: FDA-Public Use
  Company Number: US-BIOGENIDEC-2013BI017347

PATIENT
  Sex: Female

DRUGS (1)
  1. TYSABRI [Suspect]
     Indication: MULTIPLE SCLEROSIS
     Route: 042
     Dates: start: 20070514

REACTIONS (8)
  - Diarrhoea [Recovered/Resolved]
  - Diabetes mellitus [Unknown]
  - Gingival infection [Recovered/Resolved]
  - Tooth loss [Recovered/Resolved]
  - Transplant failure [Recovered/Resolved]
  - Anosmia [Not Recovered/Not Resolved]
  - Adverse event [Recovered/Resolved]
  - Headache [Recovered/Resolved]
